FAERS Safety Report 15797628 (Version 2)
Quarter: 2019Q2

REPORT INFORMATION
  Report Type: Spontaneous
  Country: US (occurrence: US)
  Receive Date: 20190108
  Receipt Date: 20190409
  Transmission Date: 20190711
  Serious: No
  Sender: FDA-Public Use
  Company Number: US-TEVA-2019-US-996278

PATIENT
  Age: 24 Year
  Sex: Male

DRUGS (4)
  1. AUSTEDO [Suspect]
     Active Substance: DEUTETRABENAZINE
     Dosage: WEEK 3: USE 12 MG TABS
     Route: 065
  2. AUSTEDO [Suspect]
     Active Substance: DEUTETRABENAZINE
     Dosage: 36 MILLIGRAM DAILY; WEEK 5: TAKE 2 TABS (18 MG) TWICE A DAY.
     Route: 065
  3. AUSTEDO [Suspect]
     Active Substance: DEUTETRABENAZINE
     Indication: HUNTINGTON^S DISEASE
     Dosage: 18 MILLIGRAM DAILY; WEEK 2: TAKE A 9 MG TABLET TWICE A DAY
     Route: 065
  4. AUSTEDO [Suspect]
     Active Substance: DEUTETRABENAZINE
     Dosage: 30 MILLIGRAM DAILY; WEEK 4: TAKE A 9 MG TWICE A DAY WITH A 6 MG (15 MG TWICE A DAY).
     Route: 065

REACTIONS (4)
  - Bedridden [Unknown]
  - Fatigue [Recovered/Resolved with Sequelae]
  - Somnolence [Recovered/Resolved with Sequelae]
  - Sluggishness [Unknown]

NARRATIVE: CASE EVENT DATE: 20181108
